FAERS Safety Report 25760446 (Version 1)
Quarter: 2025Q3

REPORT INFORMATION
  Report Type: Spontaneous
  Country: US (occurrence: US)
  Receive Date: 20250904
  Receipt Date: 20250904
  Transmission Date: 20251020
  Serious: Yes (Hospitalization)
  Sender: STRIDES
  Company Number: None

PATIENT
  Age: 59 Year
  Sex: Male

DRUGS (13)
  1. PREDNISONE [Suspect]
     Active Substance: PREDNISONE
     Indication: Myocarditis
     Route: 065
  2. PREDNISONE [Suspect]
     Active Substance: PREDNISONE
     Indication: Myositis
  3. PREDNISONE [Suspect]
     Active Substance: PREDNISONE
     Indication: Myasthenia gravis
  4. SOLU-MEDROL [Suspect]
     Active Substance: METHYLPREDNISOLONE SODIUM SUCCINATE
     Indication: Myocarditis
     Route: 065
  5. SOLU-MEDROL [Suspect]
     Active Substance: METHYLPREDNISOLONE SODIUM SUCCINATE
     Indication: Myositis
     Route: 065
  6. SOLU-MEDROL [Suspect]
     Active Substance: METHYLPREDNISOLONE SODIUM SUCCINATE
     Indication: Myasthenia gravis
  7. ABATACEPT [Concomitant]
     Active Substance: ABATACEPT
     Indication: Myocarditis
     Route: 065
  8. ABATACEPT [Concomitant]
     Active Substance: ABATACEPT
     Indication: Myositis
  9. ABATACEPT [Concomitant]
     Active Substance: ABATACEPT
     Indication: Myasthenia gravis
  10. RUXOLITINIB [Concomitant]
     Active Substance: RUXOLITINIB
     Indication: Myocarditis
     Route: 065
  11. RUXOLITINIB [Concomitant]
     Active Substance: RUXOLITINIB
     Indication: Myositis
  12. RUXOLITINIB [Concomitant]
     Active Substance: RUXOLITINIB
     Indication: Myasthenia gravis
  13. PYRIDOSTIGMINE [Concomitant]
     Active Substance: PYRIDOSTIGMINE
     Indication: Myasthenia gravis
     Route: 065

REACTIONS (2)
  - Myasthenia gravis [Recovering/Resolving]
  - Off label use [Unknown]
